FAERS Safety Report 10573736 (Version 5)
Quarter: 2015Q2

REPORT INFORMATION
  Report Type: Report from Study
  Country: US (occurrence: US)
  Receive Date: 20141110
  Receipt Date: 20150617
  Transmission Date: 20150821
  Serious: Yes (Hospitalization, Other)
  Sender: FDA-Public Use
  Company Number: US-SA-2014SA140365

PATIENT
  Age: 50 Year
  Sex: Male

DRUGS (5)
  1. MELATONIN [Concomitant]
     Active Substance: MELATONIN
  2. MUSCLE RELAXANTS [Concomitant]
     Active Substance: UNSPECIFIED INGREDIENT
  3. PREDNISONE. [Concomitant]
     Active Substance: PREDNISONE
  4. AUBAGIO [Suspect]
     Active Substance: TERIFLUNOMIDE
     Indication: MULTIPLE SCLEROSIS
     Route: 048
     Dates: start: 20141006
  5. BENADRYL [Concomitant]
     Active Substance: DIPHENHYDRAMINE HYDROCHLORIDE

REACTIONS (26)
  - Hypokinesia [Unknown]
  - Nausea [Recovered/Resolved]
  - Prostatomegaly [Unknown]
  - Fall [Unknown]
  - Impaired driving ability [Unknown]
  - Hypoaesthesia [Unknown]
  - Activities of daily living impaired [Unknown]
  - Hearing impaired [Unknown]
  - Headache [Unknown]
  - Pain in extremity [Unknown]
  - Back pain [Unknown]
  - Tooth extraction [Unknown]
  - Limb discomfort [Unknown]
  - Memory impairment [Unknown]
  - Cognitive disorder [Unknown]
  - Disturbance in attention [Unknown]
  - Muscular weakness [Unknown]
  - Dandruff [Unknown]
  - Carpal tunnel syndrome [Unknown]
  - Condition aggravated [Unknown]
  - Insomnia [Unknown]
  - Pruritus [Unknown]
  - Unevaluable event [Recovered/Resolved]
  - Gait disturbance [Unknown]
  - Insomnia [Recovered/Resolved]
  - Motion sickness [Unknown]

NARRATIVE: CASE EVENT DATE: 201410
